FAERS Safety Report 8388010-3 (Version None)
Quarter: 2012Q2

REPORT INFORMATION
  Report Type: 
  Country: None (occurrence: None)
  Receive Date: 20120525
  Receipt Date: 20120523
  Transmission Date: 20120825
  Serious: Yes (Other)
  Sender: FDA-Public Use
  Company Number: BR-BAYER-2012-051848

PATIENT
  Age: 18 Year
  Sex: Male
  Weight: 83.9 kg

DRUGS (1)
  1. AVELOX [Suspect]
     Indication: ACUTE SINUSITIS
     Dosage: 400 MG, QD
     Route: 048
     Dates: start: 20120520

REACTIONS (4)
  - VOMITING [None]
  - PYREXIA [None]
  - APHAGIA [None]
  - SOMNOLENCE [None]
